FAERS Safety Report 19054085 (Version 2)
Quarter: 2021Q2

REPORT INFORMATION
  Report Type: Spontaneous
  Country: AR (occurrence: AR)
  Receive Date: 20210324
  Receipt Date: 20210406
  Transmission Date: 20210717
  Serious: Yes (Hospitalization, Other)
  Sender: FDA-Public Use
  Company Number: AR-LUPIN PHARMACEUTICALS INC.-2021-03689

PATIENT
  Age: 5 Year
  Sex: Male

DRUGS (9)
  1. MYCOPHENOLATE MOFETIL. [Concomitant]
     Active Substance: MYCOPHENOLATE MOFETIL
     Indication: NEPHROTIC SYNDROME
     Dosage: UNK
     Route: 065
  2. CLINDAMYCIN. [Suspect]
     Active Substance: CLINDAMYCIN
     Indication: FOURNIER^S GANGRENE
     Dosage: 30 MILLIGRAM/KILOGRAM, QD
     Route: 065
  3. ALBUMIN [Concomitant]
     Active Substance: ALBUMIN HUMAN
     Indication: GENERALISED OEDEMA
     Dosage: UNK (ROUTE: ENDOVENOUS)
     Route: 065
  4. SULFAMETHOXAZOLE AND TRIMETHOPRIM [Suspect]
     Active Substance: SULFAMETHOXAZOLE\TRIMETHOPRIM
     Indication: ANTIBIOTIC PROPHYLAXIS
     Dosage: UNK
     Route: 065
  5. MEPREDNISONE [Concomitant]
     Active Substance: MEPREDNISONE
     Indication: NEPHROTIC SYNDROME
     Dosage: 10 MILLIGRAM, QD
     Route: 065
  6. VANCOMYCIN [Suspect]
     Active Substance: VANCOMYCIN
     Indication: FOURNIER^S GANGRENE
     Dosage: 60 MILLIGRAM/KILOGRAM, QD
     Route: 065
  7. AMIKACIN. [Suspect]
     Active Substance: AMIKACIN
     Indication: FOURNIER^S GANGRENE
     Dosage: 7.5 MILLIGRAM/KILOGRAM, QD
     Route: 065
  8. MEROPENEM. [Suspect]
     Active Substance: MEROPENEM
     Indication: FOURNIER^S GANGRENE
     Dosage: 60 MILLIGRAM/KILOGRAM, QD
     Route: 065
  9. CICLOSPORIN [Concomitant]
     Active Substance: CYCLOSPORINE
     Indication: NEPHROTIC SYNDROME
     Dosage: UNK
     Route: 065

REACTIONS (2)
  - Candida infection [Recovered/Resolved]
  - Urinary tract infection fungal [Recovered/Resolved]
